FAERS Safety Report 23159123 (Version 1)
Quarter: 2023Q4

REPORT INFORMATION
  Report Type: Spontaneous
  Country: IT (occurrence: IT)
  Receive Date: 20231108
  Receipt Date: 20231108
  Transmission Date: 20240110
  Serious: Yes (Life-Threatening, Hospitalization)
  Sender: FDA-Public Use
  Company Number: IT-MYLANLABS-2023M1117689

PATIENT
  Age: 25 Year
  Sex: Male

DRUGS (12)
  1. CEFTRIAXONE [Suspect]
     Active Substance: CEFTRIAXONE\CEFTRIAXONE SODIUM
     Indication: Meningococcal sepsis
     Dosage: UNK
     Route: 065
     Dates: start: 2023, end: 2023
  2. VANCOMYCIN [Suspect]
     Active Substance: VANCOMYCIN
     Indication: Meningococcal sepsis
     Dosage: UNK
     Route: 065
     Dates: start: 2023, end: 2023
  3. CLOSTRIDIUM TETANI TOXOID ANTIGEN (FORMALDEHYDE INACTIVATED)\MENINGOCO [Suspect]
     Active Substance: CLOSTRIDIUM TETANI TOXOID ANTIGEN (FORMALDEHYDE INACTIVATED)\MENINGOCOCCAL POLYSACCHARIDE VACCINE, G
     Indication: Immunisation
     Dosage: UNK
     Route: 065
     Dates: start: 202112
  4. CLOSTRIDIUM TETANI TOXOID ANTIGEN (FORMALDEHYDE INACTIVATED)\MENINGOCO [Suspect]
     Active Substance: CLOSTRIDIUM TETANI TOXOID ANTIGEN (FORMALDEHYDE INACTIVATED)\MENINGOCOCCAL POLYSACCHARIDE VACCINE, G
     Indication: Neisseria infection
  5. BEXSERO [Suspect]
     Active Substance: NEISSERIA MENINGITIDIS GROUP B FHBP FUSION PROTEIN ANTIGEN\NEISSERIA MENINGITIDIS GROUP B NADA PROTE
     Indication: Immunisation
     Dosage: UNK
     Route: 065
     Dates: start: 202201
  6. BEXSERO [Suspect]
     Active Substance: NEISSERIA MENINGITIDIS GROUP B FHBP FUSION PROTEIN ANTIGEN\NEISSERIA MENINGITIDIS GROUP B NADA PROTE
     Indication: Neisseria infection
  7. MEROPENEM [Suspect]
     Active Substance: MEROPENEM
     Indication: Meningococcal sepsis
     Dosage: UNK
     Route: 065
     Dates: start: 2023, end: 2023
  8. CLINDAMYCIN [Suspect]
     Active Substance: CLINDAMYCIN
     Indication: Meningococcal sepsis
     Dosage: UNK
     Route: 065
     Dates: start: 2023, end: 2023
  9. DAPTOMYCIN [Suspect]
     Active Substance: DAPTOMYCIN
     Indication: Meningococcal sepsis
     Dosage: UNK
     Route: 065
     Dates: start: 2023, end: 2023
  10. CEFEPIME [Suspect]
     Active Substance: CEFEPIME HYDROCHLORIDE
     Indication: Meningococcal sepsis
     Dosage: UNK
     Route: 065
     Dates: start: 2023, end: 2023
  11. RAVULIZUMAB [Concomitant]
     Active Substance: RAVULIZUMAB
     Indication: Paroxysmal nocturnal haemoglobinuria
     Dosage: UNK, INFUSION
     Route: 065
     Dates: start: 202203
  12. Immunoglobulin [Concomitant]
     Indication: Product used for unknown indication
     Dosage: UNK, QD, 0.4 G/KG
     Route: 042
     Dates: start: 2023

REACTIONS (1)
  - Drug ineffective [Unknown]
